FAERS Safety Report 4860435-X (Version None)
Quarter: 2005Q4

REPORT INFORMATION
  Report Type: 
  Country: None (occurrence: None)
  Receive Date: 20051215
  Receipt Date: 20051206
  Transmission Date: 20060501
  Serious: Yes (Other)
  Sender: FDA-Public Use
  Company Number: 2005164480

PATIENT
  Age: 58 Year
  Sex: Male
  Weight: 97.5234 kg

DRUGS (2)
  1. LIPITOR [Suspect]
     Indication: BLOOD CHOLESTEROL
     Dosage: 10 MG (10 MG, 1 IN 1 D); ABOUT 4 TO 6 YEARS AGO
     Dates: start: 20050101
  2. LUPRON [Suspect]
     Indication: NEOPLASM MALIGNANT
     Dates: start: 20050101

REACTIONS (5)
  - ASTHENIA [None]
  - FATIGUE [None]
  - HOT FLUSH [None]
  - HYPERHIDROSIS [None]
  - PROSTATE CANCER [None]
